FAERS Safety Report 9522705 (Version 1)
Quarter: 2013Q3

REPORT INFORMATION
  Report Type: Report from Study
  Country: GB (occurrence: GB)
  Receive Date: 20130913
  Receipt Date: 20130913
  Transmission Date: 20140515
  Serious: Yes (Hospitalization)
  Sender: FDA-Public Use
  Company Number: GB-PFIZER INC-2013263371

PATIENT
  Age: 92 Year
  Sex: Female

DRUGS (4)
  1. CELECOXIB [Suspect]
     Indication: OSTEOARTHRITIS
     Dosage: 100 MG, 2X/DAY
     Route: 048
     Dates: start: 20090424, end: 20130709
  2. CO-CODAMOL [Concomitant]
     Indication: GAIT DISTURBANCE
     Dosage: 60/1000
     Dates: start: 20100805
  3. ADCAL-D3 [Concomitant]
     Indication: GAIT DISTURBANCE
     Dosage: UNK
     Dates: start: 20100805
  4. ALENDRONIC ACID [Concomitant]
     Indication: GAIT DISTURBANCE
     Dosage: 70 MG, WEEKLY
     Dates: start: 20100805

REACTIONS (2)
  - Vomiting [Recovered/Resolved]
  - Confusional state [Recovered/Resolved]
